FAERS Safety Report 12737750 (Version 1)
Quarter: 2016Q3

REPORT INFORMATION
  Report Type: Spontaneous
  Country: US (occurrence: US)
  Receive Date: 20160912
  Receipt Date: 20160912
  Transmission Date: 20161109
  Serious: Yes (Other)
  Sender: FDA-Public Use
  Company Number: None

PATIENT
  Age: 53 Year
  Sex: Female
  Weight: 112.5 kg

DRUGS (2)
  1. SAPHRIS [Suspect]
     Active Substance: ASENAPINE MALEATE
     Indication: BIPOLAR I DISORDER
     Route: 060
     Dates: start: 20160601, end: 20160912
  2. NATTOKINESE [Concomitant]

REACTIONS (2)
  - Breast cancer [None]
  - Lymphoma [None]

NARRATIVE: CASE EVENT DATE: 20160822
